FAERS Safety Report 8589670-4 (Version None)
Quarter: 2012Q3

REPORT INFORMATION
  Report Type: 
  Country: None (occurrence: None)
  Receive Date: 20120813
  Receipt Date: 20120809
  Transmission Date: 20120928
  Serious: Yes (Other)
  Sender: FDA-Public Use
  Company Number: SE-ROCHE-1090044

PATIENT
  Age: 73 Year
  Sex: Female

DRUGS (1)
  1. IBANDRONATE SODIUM [Suspect]
     Indication: PRODUCT USED FOR UNKNOWN INDICATION
     Dates: end: 20110801

REACTIONS (1)
  - OSTEONECROSIS [None]
